FAERS Safety Report 19904548 (Version 1)
Quarter: 2021Q3

REPORT INFORMATION
  Report Type: Spontaneous
  Country: CN (occurrence: CN)
  Receive Date: 20210930
  Receipt Date: 20210930
  Transmission Date: 20211014
  Serious: Yes (Other)
  Sender: FDA-Public Use
  Company Number: CN-SLATE RUN PHARMACEUTICALS-21CN000699

PATIENT

DRUGS (16)
  1. CORTICOSTEROIDS [Concomitant]
     Active Substance: CORTICOSTEROID NOS
     Indication: MATERNAL EXPOSURE DURING PREGNANCY
     Route: 015
  2. RIF [RIFAMPICIN] [Concomitant]
     Indication: MATERNAL EXPOSURE DURING PREGNANCY
     Route: 015
  3. TACROLIMUS. [Concomitant]
     Active Substance: TACROLIMUS
     Indication: MATERNAL EXPOSURE DURING PREGNANCY
     Route: 015
  4. HEPARIN [Concomitant]
     Active Substance: HEPARIN SODIUM
     Indication: MATERNAL EXPOSURE DURING PREGNANCY
     Route: 015
  5. AMIKACIN. [Concomitant]
     Active Substance: AMIKACIN
     Indication: MATERNAL EXPOSURE DURING PREGNANCY
     Route: 015
  6. PZA [Concomitant]
     Active Substance: PYRAZINAMIDE
     Indication: MATERNAL EXPOSURE DURING PREGNANCY
     Route: 015
  7. LINEZOLID. [Concomitant]
     Active Substance: LINEZOLID
     Indication: MATERNAL EXPOSURE DURING PREGNANCY
     Route: 015
  8. AZITHROMYCIN USP [Suspect]
     Active Substance: AZITHROMYCIN
     Indication: MATERNAL EXPOSURE DURING PREGNANCY
     Dosage: UNK
     Route: 015
  9. INH [Concomitant]
     Active Substance: ISONIAZID
     Indication: MATERNAL EXPOSURE DURING PREGNANCY
     Route: 015
  10. LEVOFLOXACIN. [Concomitant]
     Active Substance: LEVOFLOXACIN
     Indication: MATERNAL EXPOSURE DURING PREGNANCY
     Route: 015
  11. MEROPENEM. [Concomitant]
     Active Substance: MEROPENEM
     Indication: MATERNAL EXPOSURE DURING PREGNANCY
     Route: 015
  12. METHYLPREDNISOLON [METHYLPREDNISOLONE] [Concomitant]
     Active Substance: METHYLPREDNISOLONE
     Indication: MATERNAL EXPOSURE DURING PREGNANCY
     Route: 015
  13. AMPICILLIN [Concomitant]
     Active Substance: AMPICILLIN
     Indication: MATERNAL EXPOSURE DURING PREGNANCY
     Route: 015
  14. RED BLOOD CELLS [Concomitant]
     Active Substance: HUMAN RED BLOOD CELL
     Indication: MATERNAL EXPOSURE DURING PREGNANCY
     Route: 015
  15. BASILIXIMAB [Concomitant]
     Active Substance: BASILIXIMAB
     Indication: MATERNAL EXPOSURE DURING PREGNANCY
     Route: 015
  16. MYCOPHENOLATE SODIUM [Concomitant]
     Active Substance: MYCOPHENOLATE SODIUM
     Indication: MATERNAL EXPOSURE DURING PREGNANCY
     Route: 015

REACTIONS (2)
  - Ventricular enlargement [Unknown]
  - Foetal exposure during pregnancy [Unknown]
